FAERS Safety Report 7568368-5 (Version None)
Quarter: 2011Q2

REPORT INFORMATION
  Report Type: 
  Country: None (occurrence: None)
  Receive Date: 20110623
  Receipt Date: 20110107
  Transmission Date: 20111010
  Serious: Yes (Other)
  Sender: FDA-Public Use
  Company Number: B0692710A

PATIENT
  Sex: Male
  Weight: 77 kg

DRUGS (1)
  1. ZYBAN [Suspect]
     Route: 048
     Dates: start: 20101123, end: 20101224

REACTIONS (9)
  - DEAFNESS [None]
  - PAIN IN EXTREMITY [None]
  - PARAESTHESIA [None]
  - BALANCE DISORDER [None]
  - HEADACHE [None]
  - TINNITUS [None]
  - DEAFNESS UNILATERAL [None]
  - CEREBELLAR SYNDROME [None]
  - HYPERACUSIS [None]
